FAERS Safety Report 24578469 (Version 3)
Quarter: 2025Q1

REPORT INFORMATION
  Report Type: Report from Study
  Country: BR (occurrence: BR)
  Receive Date: 20241105
  Receipt Date: 20250109
  Transmission Date: 20250409
  Serious: Yes (Hospitalization, Disabling, Other)
  Sender: TAKEDA
  Company Number: BR-TAKEDA-2024TUS109208

PATIENT
  Age: 34 Year
  Sex: Male

DRUGS (4)
  1. VEDOLIZUMAB [Suspect]
     Active Substance: VEDOLIZUMAB
     Indication: Colitis ulcerative
  2. Tropinal [Concomitant]
     Indication: Pain
  3. LOPERAMIDE [Concomitant]
     Active Substance: LOPERAMIDE
     Indication: Pain
  4. PREDNISOLONE [Concomitant]
     Active Substance: PREDNISOLONE

REACTIONS (10)
  - Haematochezia [Unknown]
  - Colitis ulcerative [Unknown]
  - Malaise [Recovering/Resolving]
  - Diarrhoea [Not Recovered/Not Resolved]
  - Impaired work ability [Unknown]
  - Product availability issue [Unknown]
  - Inappropriate schedule of product administration [Not Recovered/Not Resolved]
  - Gastrointestinal pain [Unknown]
  - Frequent bowel movements [Unknown]
  - Product dose omission issue [Recovered/Resolved]

NARRATIVE: CASE EVENT DATE: 20240722
